FAERS Safety Report 18348056 (Version 2)
Quarter: 2020Q4

REPORT INFORMATION
  Report Type: Spontaneous
  Country: US (occurrence: US)
  Receive Date: 20201006
  Receipt Date: 20201217
  Transmission Date: 20210114
  Serious: No
  Sender: FDA-Public Use
  Company Number: US-TEVA-2020-US-1835539

PATIENT
  Age: 65 Year
  Sex: Female
  Weight: 63 kg

DRUGS (4)
  1. SYNTHROID [Concomitant]
     Active Substance: LEVOTHYROXINE SODIUM
  2. AJOVY [Suspect]
     Active Substance: FREMANEZUMAB-VFRM
     Indication: MIGRAINE
     Dosage: SWITCHED TO EMGALITY FOR A SHORT TIME DUE TO INSURANCE, BEFORE RETURNING TO TREATMENT WITH AJOVY
     Dates: start: 2019
  3. CRESTOR [Concomitant]
     Active Substance: ROSUVASTATIN CALCIUM
  4. AJOVY [Suspect]
     Active Substance: FREMANEZUMAB-VFRM

REACTIONS (10)
  - Insomnia [Unknown]
  - Injection site erythema [Recovered/Resolved]
  - Constipation [Unknown]
  - Fatigue [Unknown]
  - Peripheral swelling [Unknown]
  - Injection site swelling [Recovered/Resolved]
  - Weight increased [Recovered/Resolved]
  - Glomerular filtration rate increased [Unknown]
  - Intentional product misuse [Unknown]
  - Injection site reaction [Recovered/Resolved]
